FAERS Safety Report 7930965-2 (Version None)
Quarter: 2011Q4

REPORT INFORMATION
  Report Type: 
  Country: None (occurrence: None)
  Receive Date: 20111121
  Receipt Date: 20111117
  Transmission Date: 20120403
  Serious: Yes (Other)
  Sender: FDA-Public Use
  Company Number: US-PFIZER INC-2011283261

PATIENT
  Sex: Female
  Weight: 78.005 kg

DRUGS (10)
  1. EFFEXOR XR [Suspect]
     Indication: ANXIETY
  2. EFFEXOR XR [Suspect]
     Indication: DEPRESSION
     Dosage: 150 MG, DAILY
     Dates: start: 20090101
  3. CLONAZEPAM [Concomitant]
     Indication: ANXIETY
     Dosage: 0.5 MG, AS NEEDED
  4. PROZAC [Suspect]
     Indication: ANXIETY
  5. LAMICTAL [Suspect]
     Indication: ANXIETY
  6. PROZAC [Suspect]
     Indication: DEPRESSION
     Dosage: 80 MG, DAILY
     Dates: start: 20090101
  7. LAMICTAL [Suspect]
     Indication: DEPRESSION
     Dosage: 200 MG, DAILY
     Dates: start: 20090101
  8. PROZAC [Suspect]
     Indication: OBSESSIVE-COMPULSIVE DISORDER
  9. LAMICTAL [Suspect]
     Indication: OBSESSIVE-COMPULSIVE DISORDER
  10. EFFEXOR XR [Suspect]
     Indication: OBSESSIVE-COMPULSIVE DISORDER

REACTIONS (3)
  - WEIGHT DECREASED [None]
  - HYPERTENSION [None]
  - WEIGHT INCREASED [None]
